FAERS Safety Report 19194063 (Version 1)
Quarter: 2021Q2

REPORT INFORMATION
  Report Type: Spontaneous
  Country: US (occurrence: US)
  Receive Date: 20210428
  Receipt Date: 20210428
  Transmission Date: 20210717
  Serious: Yes (Other)
  Sender: FDA-Public Use
  Company Number: None

PATIENT
  Age: 76 Year
  Sex: Male
  Weight: 77 kg

DRUGS (1)
  1. PROTAMINE SULFATE (PROTAMINE SO4 10MG/ML INJ) [Suspect]
     Active Substance: PROTAMINE SULFATE
     Indication: CARDIOVASCULAR DISORDER
     Dates: start: 20210312, end: 20210312

REACTIONS (1)
  - Hypotension [None]

NARRATIVE: CASE EVENT DATE: 20210312
